FAERS Safety Report 5305673-7 (Version None)
Quarter: 2007Q2

REPORT INFORMATION
  Report Type: 
  Country: None (occurrence: None)
  Receive Date: 20070424
  Receipt Date: 20070315
  Transmission Date: 20071010
  Serious: No
  Sender: FDA-Public Use
  Company Number: US-JNJFOC-20070403107

PATIENT
  Sex: Male

DRUGS (5)
  1. INVEGA [Suspect]
     Indication: SCHIZOPHRENIA
     Route: 048
  2. RISPERDAL CONSTA [Concomitant]
     Indication: SCHIZOPHRENIA
     Route: 030
  3. HALDOL [Concomitant]
     Route: 048
  4. DEPAKOTE [Concomitant]
     Route: 048
  5. ABILIFY [Concomitant]
     Route: 048

REACTIONS (1)
  - EXTRAPYRAMIDAL DISORDER [None]
